FAERS Safety Report 21053810 (Version 1)
Quarter: 2022Q3

REPORT INFORMATION
  Report Type: Report from Study
  Country: PL (occurrence: PL)
  Receive Date: 20220707
  Receipt Date: 20220707
  Transmission Date: 20221027
  Serious: Yes (Death)
  Sender: FDA-Public Use
  Company Number: PL-Merck Healthcare KGaA-9158446

PATIENT
  Age: 39 Year
  Sex: Male
  Weight: 51 kg

DRUGS (4)
  1. FLUOROURACIL [Suspect]
     Active Substance: FLUOROURACIL
     Indication: Colorectal cancer metastatic
     Dosage: UNK UNK, Q2W 2416 (UNSPECIFIED UNIT)
     Route: 065
     Dates: start: 20190423, end: 20190529
  2. IRINOTECAN [Suspect]
     Active Substance: IRINOTECAN
     Indication: Colorectal cancer metastatic
     Dosage: 272 MILLIGRAM, BIWEEKLY
     Route: 065
     Dates: start: 20190423, end: 20190529
  3. CETUXIMAB [Suspect]
     Active Substance: CETUXIMAB
     Indication: Colorectal cancer metastatic
     Dosage: 755 MILLIGRAM/SQ. METER
     Route: 065
     Dates: start: 20190423, end: 20190529
  4. LEUCOVORIN [Suspect]
     Active Substance: LEUCOVORIN
     Indication: Colorectal cancer metastatic
     Dosage: UNK UNK, Q2W 302 (UNSPECIFIED UNIT)
     Route: 065
     Dates: start: 20190423, end: 20190529

REACTIONS (2)
  - Death [Fatal]
  - Off label use [Unknown]

NARRATIVE: CASE EVENT DATE: 20190605
